FAERS Safety Report 9284943 (Version 4)
Quarter: 2013Q3

REPORT INFORMATION
  Report Type: Report from Study
  Country: US (occurrence: US)
  Receive Date: 20130513
  Receipt Date: 20130830
  Transmission Date: 20140515
  Serious: Yes (Death, Other)
  Sender: FDA-Public Use
  Company Number: PHEH2013US009867

PATIENT
  Age: 72 Year
  Sex: Male

DRUGS (3)
  1. EXELON PATCH [Suspect]
     Indication: DEMENTIA ALZHEIMER^S TYPE
     Dosage: 9.5 MG, DAILY
     Route: 062
     Dates: end: 20130415
  2. SEROQUEL [Concomitant]
     Dosage: UNK UKN, UNK
  3. NAMENDA [Concomitant]
     Dosage: UNK UKN, UNK

REACTIONS (6)
  - Death [Fatal]
  - General physical health deterioration [Not Recovered/Not Resolved]
  - Delusion [Not Recovered/Not Resolved]
  - Hallucination [Not Recovered/Not Resolved]
  - Lethargy [Recovering/Resolving]
  - Decreased appetite [Recovering/Resolving]
